FAERS Safety Report 18496829 (Version 3)
Quarter: 2021Q2

REPORT INFORMATION
  Report Type: Report from Study
  Country: None (occurrence: US)
  Receive Date: 20201112
  Receipt Date: 20210421
  Transmission Date: 20210717
  Serious: Yes (Other)
  Sender: FDA-Public Use
  Company Number: US-ABBVIE-20K-163-3639666-00

PATIENT
  Age: 61 Year
  Sex: Male

DRUGS (3)
  1. SKYRIZI [Suspect]
     Active Substance: RISANKIZUMAB-RZAA
     Indication: PSORIASIS
     Route: 058
  2. LISINOPRIL. [Concomitant]
     Active Substance: LISINOPRIL
     Indication: PRODUCT USED FOR UNKNOWN INDICATION
  3. SKYRIZI [Suspect]
     Active Substance: RISANKIZUMAB-RZAA
     Indication: PSORIASIS
     Route: 058
     Dates: start: 20190911

REACTIONS (24)
  - Cardiac failure [Unknown]
  - Discomfort [Not Recovered/Not Resolved]
  - Chronic kidney disease [Recovering/Resolving]
  - Malnutrition [Unknown]
  - Thrombocytopenia [Unknown]
  - Squamous cell carcinoma of skin [Unknown]
  - Type IIa hyperlipidaemia [Unknown]
  - Hepatic steatosis [Unknown]
  - Liver disorder [Recovering/Resolving]
  - Clostridium difficile infection [Recovering/Resolving]
  - Psoriasis [Not Recovered/Not Resolved]
  - Drug hypersensitivity [Unknown]
  - Tricuspid valve incompetence [Unknown]
  - Hepatic cirrhosis [Unknown]
  - Anaemia of chronic disease [Unknown]
  - Atrial fibrillation [Unknown]
  - Type 2 diabetes mellitus [Recovering/Resolving]
  - Carcinoma in situ of skin [Unknown]
  - Psoriatic arthropathy [Unknown]
  - Localised infection [Recovering/Resolving]
  - Essential hypertension [Unknown]
  - Atrioventricular block first degree [Unknown]
  - Hypomagnesaemia [Unknown]
  - Sinusitis [Not Recovered/Not Resolved]

NARRATIVE: CASE EVENT DATE: 20200819
